FAERS Safety Report 8643802 (Version 5)
Quarter: 2013Q1

REPORT INFORMATION
  Report Type: Spontaneous
  Country: JP (occurrence: JP)
  Receive Date: 20120629
  Receipt Date: 20130205
  Transmission Date: 20140127
  Serious: Yes (Death, Life-Threatening)
  Sender: FDA-Public Use
  Company Number: JP-ROCHE-1080920

PATIENT
  Age: 61 Year
  Sex: Female
  Weight: 49 kg

DRUGS (19)
  1. INDISETRON HYDROCHLORIDE [Concomitant]
     Indication: PROPHYLAXIS OF NAUSEA AND VOMITING
     Route: 048
     Dates: start: 20090403, end: 20090407
  2. MAGNESIUM OXIDE [Concomitant]
     Indication: CONSTIPATION
     Route: 048
     Dates: start: 20090403
  3. VESICARE [Concomitant]
     Indication: URINARY INCONTINENCE
     Route: 048
     Dates: start: 20090406
  4. AVASTIN [Suspect]
     Indication: COLON CANCER METASTATIC
     Route: 041
     Dates: start: 20090402, end: 20090416
  5. ELPLAT [Concomitant]
     Indication: COLON CANCER METASTATIC
     Route: 041
     Dates: start: 20090402, end: 20090416
  6. ISOVORIN [Concomitant]
     Indication: COLON CANCER METASTATIC
     Route: 041
     Dates: start: 20090402, end: 20090416
  7. 5-FU [Concomitant]
     Indication: COLON CANCER METASTATIC
     Route: 040
     Dates: start: 20090402, end: 20090416
  8. 5-FU [Concomitant]
     Indication: COLON CANCER METASTATIC
     Route: 041
     Dates: start: 20090402, end: 20090416
  9. RAMOSETRON HYDROCHLORIDE [Concomitant]
     Indication: COLON CANCER METASTATIC
     Route: 041
     Dates: start: 20090402, end: 20090416
  10. DEXAMETHASONE SODIUM PHOSPHATE [Concomitant]
     Indication: COLON CANCER METASTATIC
     Route: 041
     Dates: start: 20090402, end: 20090416
  11. HEPARIN NA [Concomitant]
     Route: 041
  12. SENNOSIDE [Concomitant]
     Indication: CONSTIPATION
     Dosage: SINGLE USE
     Route: 048
  13. LOXOPROFEN [Concomitant]
     Indication: WOUND COMPLICATION
     Dosage: SINGLE USE
     Route: 048
  14. LOXOPROFEN [Concomitant]
     Indication: BACK PAIN
  15. REBAMIPIDE [Concomitant]
     Indication: WOUND COMPLICATION
     Dosage: SINGLE USE
     Route: 048
  16. REBAMIPIDE [Concomitant]
     Indication: BACK PAIN
  17. BROTIZOLAM [Concomitant]
     Indication: INSOMNIA
     Dosage: SINGLE USE
     Route: 048
  18. AMLODIPINE [Concomitant]
     Indication: HYPERTENSION
     Route: 048
     Dates: start: 20090313, end: 20090402
  19. CEFCAPENE PIVOXIL HYDROCHLORIDE [Concomitant]
     Indication: URINARY TRACT INFECTION
     Route: 048
     Dates: start: 20090331, end: 20090403

REACTIONS (4)
  - Nausea [Unknown]
  - Decreased appetite [Unknown]
  - Deep vein thrombosis [Recovered/Resolved]
  - Disease progression [Fatal]
